FAERS Safety Report 9201545 (Version 1)
Quarter: 2013Q2

REPORT INFORMATION
  Report Type: Spontaneous
  Country: US (occurrence: US)
  Receive Date: 20130401
  Receipt Date: 20130401
  Transmission Date: 20140414
  Serious: Yes (Other)
  Sender: FDA-Public Use
  Company Number: US-AMGEN-USASP2013021069

PATIENT
  Age: 56 Year
  Sex: Female

DRUGS (5)
  1. ENBREL [Suspect]
     Indication: RHEUMATOID ARTHRITIS
     Dosage: 50 MG, QWK
     Dates: start: 20070621, end: 20130312
  2. ENBREL [Suspect]
     Indication: FIBROMYALGIA
  3. ENBREL [Suspect]
     Indication: OSTEOARTHRITIS
  4. PLAQUENIL /00072602/ [Suspect]
     Dosage: UNK
  5. METHOTREXATE [Suspect]
     Dosage: 60 UNIT, QWK
     Dates: start: 201208

REACTIONS (5)
  - Eye disorder [Not Recovered/Not Resolved]
  - Vision blurred [Not Recovered/Not Resolved]
  - Arthritis [Not Recovered/Not Resolved]
  - Injection site haemorrhage [Recovered/Resolved]
  - Injection site bruising [Recovered/Resolved]
